FAERS Safety Report 22199171 (Version 2)
Quarter: 2023Q2

REPORT INFORMATION
  Report Type: Spontaneous
  Country: JP (occurrence: JP)
  Receive Date: 20230411
  Receipt Date: 20230505
  Transmission Date: 20230722
  Serious: Yes (Hospitalization, Other)
  Sender: FDA-Public Use
  Company Number: JP-MSD-M2023-12711

PATIENT
  Age: 60 Year
  Sex: Female

DRUGS (2)
  1. KEYTRUDA [Suspect]
     Active Substance: PEMBROLIZUMAB
     Indication: Triple negative breast cancer
     Dosage: 200 MILLIGRAM, Q3W
     Route: 041
     Dates: start: 20220425, end: 20230313
  2. PACLITAXEL [Concomitant]
     Active Substance: PACLITAXEL
     Dosage: 80 MILLIGRAM
     Route: 041
     Dates: start: 20230313

REACTIONS (2)
  - Immune-mediated enterocolitis [Recovered/Resolved]
  - Hepatic function abnormal [Recovered/Resolved]

NARRATIVE: CASE EVENT DATE: 20230328
